FAERS Safety Report 8260126-1 (Version None)
Quarter: 2012Q2

REPORT INFORMATION
  Report Type: 
  Country: None (occurrence: None)
  Receive Date: 20120404
  Receipt Date: 20120329
  Transmission Date: 20120825
  Serious: No
  Sender: FDA-Public Use
  Company Number: US-PFIZER INC-2012081489

PATIENT
  Age: 52 Year
  Sex: Female

DRUGS (2)
  1. ESTRADIOL [Suspect]
     Indication: MENOPAUSE
     Dosage: UNK
     Dates: start: 20080101, end: 20111201
  2. MEDROXYPROGESTERONE [Suspect]
     Indication: MENOPAUSE
     Dosage: UNK
     Dates: start: 20080101, end: 20111201

REACTIONS (1)
  - ALOPECIA [None]
